FAERS Safety Report 15963020 (Version 2)
Quarter: 2019Q1

REPORT INFORMATION
  Report Type: Report from Study
  Country: ES (occurrence: ES)
  Receive Date: 20190214
  Receipt Date: 20190219
  Transmission Date: 20190417
  Serious: Yes (Hospitalization, Other)
  Sender: FDA-Public Use
  Company Number: ES-SA-2019SA037670

PATIENT
  Age: 78 Year
  Sex: Female
  Weight: 57 kg

DRUGS (1)
  1. INSULIN GLARGINE [Suspect]
     Active Substance: INSULIN GLARGINE
     Indication: TYPE 2 DIABETES MELLITUS
     Dosage: 46 IU, QD (EVERY 24 HOURS)
     Route: 058

REACTIONS (4)
  - Hyperglycaemia [Unknown]
  - Wound infection [Recovered/Resolved]
  - Colostomy closure [Unknown]
  - Haematoma [Recovered/Resolved]

NARRATIVE: CASE EVENT DATE: 20190121
